FAERS Safety Report 12093664 (Version 3)
Quarter: 2016Q2

REPORT INFORMATION
  Report Type: Report from Study
  Country: CA (occurrence: CA)
  Receive Date: 20160219
  Receipt Date: 20160506
  Transmission Date: 20160815
  Serious: Yes (Life-Threatening, Hospitalization)
  Sender: FDA-Public Use
  Company Number: CA-TOLMAR, INC.-2016CA001429

PATIENT

DRUGS (1)
  1. ELIGARD [Suspect]
     Active Substance: LEUPROLIDE ACETATE
     Indication: HORMONE THERAPY
     Dosage: 22.5 MG, Q3MONTHS
     Route: 058
     Dates: start: 20150601

REACTIONS (7)
  - Peripheral swelling [Unknown]
  - Balance disorder [Unknown]
  - Sepsis [Recovered/Resolved]
  - Endocarditis [Recovered/Resolved]
  - Feeling hot [Unknown]
  - Haematuria [Recovered/Resolved]
  - Acute pulmonary oedema [Recovered/Resolved]

NARRATIVE: CASE EVENT DATE: 20151207
